FAERS Safety Report 5167054-9 (Version None)
Quarter: 2006Q4

REPORT INFORMATION
  Report Type: 
  Country: None (occurrence: None)
  Receive Date: 20061207
  Receipt Date: 20061127
  Transmission Date: 20070319
  Serious: Yes (Other)
  Sender: FDA-Public Use
  Company Number: US-JNJFOC-20061106126

PATIENT
  Sex: Female
  Weight: 99.79 kg

DRUGS (1)
  1. DURAGESIC-100 [Suspect]
     Indication: CANCER PAIN
     Route: 062

REACTIONS (4)
  - BALANCE DISORDER [None]
  - CARDIAC FLUTTER [None]
  - FEELING ABNORMAL [None]
  - MUSCULAR WEAKNESS [None]
